FAERS Safety Report 5626560-0 (Version None)
Quarter: 2008Q1

REPORT INFORMATION
  Report Type: 
  Country: None (occurrence: None)
  Receive Date: 20080214
  Receipt Date: 20080203
  Transmission Date: 20080703
  Serious: Yes (Life-Threatening, Hospitalization, Other)
  Sender: FDA-Public Use
  Company Number: US-ELI_LILLY_AND_COMPANY-US200801005369

PATIENT
  Sex: Male
  Weight: 78.912 kg

DRUGS (8)
  1. CYMBALTA [Suspect]
     Indication: DIABETIC NEUROPATHY
     Dosage: 60 MG, DAILY (1/D)
     Route: 048
     Dates: end: 20080123
  2. ATENOLOL [Concomitant]
     Dosage: 50 MG, DAILY (1/D)
     Route: 048
  3. DILANTIN [Concomitant]
     Dosage: 100 MG, 3/D
     Route: 048
  4. DILANTIN [Concomitant]
     Dosage: 30 MG, DAILY (1/D)
     Route: 048
  5. DYAZIDE [Concomitant]
     Dosage: 1 D/F, DAILY (1/D)
     Route: 048
  6. LEVOTHYROXINE SODIUM [Concomitant]
     Dosage: 150 UG, DAILY (1/D)
     Route: 048
  7. OMEPRAZOLE [Concomitant]
     Dosage: 20 MG, OTHER
     Route: 048
  8. SIMVASTATIN [Concomitant]
     Dosage: 40 MG, DAILY (1/D)
     Route: 048

REACTIONS (7)
  - ALANINE AMINOTRANSFERASE INCREASED [None]
  - ASPARTATE AMINOTRANSFERASE INCREASED [None]
  - ATRIAL FIBRILLATION [None]
  - BLOOD ALKALINE PHOSPHATASE INCREASED [None]
  - CARDIAC MURMUR [None]
  - CHOLECYSTITIS [None]
  - UPPER RESPIRATORY TRACT INFECTION [None]
